FAERS Safety Report 17691405 (Version 3)
Quarter: 2020Q3

REPORT INFORMATION
  Report Type: Report from Study
  Country: BR (occurrence: BR)
  Receive Date: 20200422
  Receipt Date: 20200817
  Transmission Date: 20201102
  Serious: Yes (Other)
  Sender: FDA-Public Use
  Company Number: BR-B.I. PHARMACEUTICALS,INC./RIDGEFIELD-2020-MR-019932

PATIENT
  Sex: Female
  Weight: 65 kg

DRUGS (7)
  1. RESTIVA [Concomitant]
     Active Substance: BUPRENORPHINE
     Indication: DRUG THERAPY
     Dosage: 1 POR MES
     Route: 065
  2. GILOTRIF [Suspect]
     Active Substance: AFATINIB
     Indication: NON-SMALL CELL LUNG CANCER
     Dosage: 40MG 1X AO DIA
     Route: 048
     Dates: start: 201904
  3. LEXOTAN [Concomitant]
     Active Substance: BROMAZEPAM
     Indication: SLEEP DISORDER
     Dosage: 3MG 1X AO DIA
  4. TRAMAL [Concomitant]
     Active Substance: TRAMADOL
     Indication: CONGENITAL LUMBAR SYNDROME
     Dosage: 100MG POR DIA
     Route: 065
  5. CENTRUM WOMEN [Concomitant]
     Active Substance: VITAMINS
     Indication: VITAMIN SUPPLEMENTATION
     Dosage: 1 CAPSULA POR DIA
  6. OMEPRAZOL [OMEPRAZOLE] [Concomitant]
     Active Substance: OMEPRAZOLE
     Indication: PROPHYLAXIS
     Dosage: 1 CP POR DIA
  7. OSCAL D [CALCIUM CARBONATE;VITAMIN D NOS] [Concomitant]
     Indication: DRUG THERAPY
     Dosage: 2 CP POR DIA
     Route: 065

REACTIONS (16)
  - Vulvovaginal pain [Recovered/Resolved]
  - Limb injury [Recovered/Resolved]
  - Flatulence [Not Recovered/Not Resolved]
  - Skin fissures [Not Recovered/Not Resolved]
  - Skin fissures [Not Recovered/Not Resolved]
  - Oral pain [Not Recovered/Not Resolved]
  - Urinary tract discomfort [Recovered/Resolved]
  - Deafness [Recovered/Resolved]
  - Ear injury [Recovered/Resolved]
  - Gastrointestinal disorder [Recovered/Resolved]
  - Pulmonary mass [Not Recovered/Not Resolved]
  - Ear pain [Recovered/Resolved]
  - Skin injury [Not Recovered/Not Resolved]
  - Genital pain [Not Recovered/Not Resolved]
  - Nail injury [Not Recovered/Not Resolved]
  - Nasal injury [Not Recovered/Not Resolved]

NARRATIVE: CASE EVENT DATE: 2019
